FAERS Safety Report 12200172 (Version 3)
Quarter: 2016Q3

REPORT INFORMATION
  Report Type: Report from Study
  Country: JP (occurrence: JP)
  Receive Date: 20160322
  Receipt Date: 20160704
  Transmission Date: 20161109
  Serious: Yes (Other)
  Sender: FDA-Public Use
  Company Number: JP-BRISTOL-MYERS SQUIBB COMPANY-BMS-2016-021062

PATIENT
  Age: 70 Year
  Sex: Male
  Weight: 75 kg

DRUGS (10)
  1. APIXABAN [Suspect]
     Active Substance: APIXABAN
     Indication: CEREBROVASCULAR ACCIDENT PROPHYLAXIS
     Dosage: 5 MG, BID
     Route: 048
     Dates: start: 20140228
  2. CINAL [Concomitant]
     Active Substance: ASCORBIC ACID\CALCIUM PANTOTHENATE
     Indication: PUSTULAR PSORIASIS
     Dosage: 800 MG, QD
     Route: 048
     Dates: start: 20140228
  3. MIYA-BM [Concomitant]
     Active Substance: CLOSTRIDIUM BUTYRICUM SPORES STRAIN M-55
     Indication: PUSTULAR PSORIASIS
     Dosage: UNK
     Route: 048
     Dates: start: 20140228
  4. DOVONEX [Concomitant]
     Active Substance: CALCIPOTRIENE
     Indication: PUSTULAR PSORIASIS
     Dosage: 20 G, QMO
     Route: 062
     Dates: start: 20160115
  5. BIOTIN [Concomitant]
     Active Substance: BIOTIN
     Indication: PUSTULAR PSORIASIS
     Dosage: 2 G, QD
     Route: 048
     Dates: start: 20140228
  6. LIVALO [Concomitant]
     Active Substance: PITAVASTATIN CALCIUM
     Indication: DYSLIPIDAEMIA
     Dosage: 1 MG, QD
     Route: 048
     Dates: start: 20150924
  7. IRBETAN [Concomitant]
     Active Substance: IRBESARTAN
     Indication: HYPERTENSION
     Dosage: 100 MG, QD
     Route: 048
  8. OMEPRAL                            /00661201/ [Concomitant]
     Active Substance: OMEPRAZOLE
     Indication: CHRONIC GASTRITIS
     Dosage: 20 MG, QD
     Route: 048
  9. MAINTATE [Concomitant]
     Active Substance: BISOPROLOL FUMARATE
     Indication: HYPERTENSION
     Dosage: 2.5 MG, QD
     Route: 048
  10. COLCHICINE. [Concomitant]
     Active Substance: COLCHICINE
     Indication: PUSTULAR PSORIASIS
     Dosage: 1.5 MG, QD
     Route: 048

REACTIONS (2)
  - Intraocular lens implant [Unknown]
  - Cataract [Recovered/Resolved]

NARRATIVE: CASE EVENT DATE: 20151026
